FAERS Safety Report 21074426 (Version 2)
Quarter: 2022Q3

REPORT INFORMATION
  Report Type: Spontaneous
  Country: AU (occurrence: None)
  Receive Date: 20220713
  Receipt Date: 20220729
  Transmission Date: 20221027
  Serious: Yes (Other)
  Sender: FDA-Public Use
  Company Number: AU-Orion Corporation ORION PHARMA-ENTC2022-0138

PATIENT
  Sex: Female

DRUGS (7)
  1. STALEVO [Suspect]
     Active Substance: CARBIDOPA\ENTACAPONE\LEVODOPA
     Indication: Product used for unknown indication
     Dosage: STRENGTH: 200/50/200?0800, 1100, 1400, 1630
     Route: 065
  2. PRAMIPEXOLE [Concomitant]
     Active Substance: PRAMIPEXOLE
     Route: 065
  3. AMANTADINE [Concomitant]
     Active Substance: AMANTADINE
     Route: 065
  4. CHOLECALCIFEROL [Concomitant]
     Active Substance: CHOLECALCIFEROL
     Route: 065
  5. SOLIFENACIN [Concomitant]
     Active Substance: SOLIFENACIN
     Route: 065
  6. FLUDROCORTISONE [Concomitant]
     Active Substance: FLUDROCORTISONE
     Route: 065
  7. VENLAFAXINE [Concomitant]
     Active Substance: VENLAFAXINE HYDROCHLORIDE
     Dosage: STRENGTH: 37.5MG
     Route: 065

REACTIONS (10)
  - Macular degeneration [Unknown]
  - Parkinson^s disease [Unknown]
  - Sciatica [Unknown]
  - Radius fracture [Unknown]
  - Urinary incontinence [Unknown]
  - Dyskinesia [Unknown]
  - Anxiety [Unknown]
  - Arthritis [Unknown]
  - Tremor [Unknown]
  - Weight decreased [Unknown]

NARRATIVE: CASE EVENT DATE: 20110101
